FAERS Safety Report 5426665-3 (Version None)
Quarter: 2007Q3

REPORT INFORMATION
  Report Type: 
  Country: None (occurrence: None)
  Receive Date: 20070731
  Receipt Date: 20070514
  Transmission Date: 20080115
  Serious: No
  Sender: FDA-Public Use
  Company Number: 2006PV013367

PATIENT
  Age: 60 Year
  Sex: Female
  Weight: 99.3 kg

DRUGS (12)
  1. EXENATIDE(EXENATIDE) PEN,DISPOSABLE [Suspect]
     Indication: TYPE 2 DIABETES MELLITUS
     Dosage: 5 UG, 2/D, SUBCUTANEOUS 10 UG, 2/D, 10 UG, 2/D 5 UG, 2/D,5 UG, 2/D 10 UG, 2/D
     Route: 058
     Dates: start: 20060401, end: 20060501
  2. EXENATIDE(EXENATIDE) PEN,DISPOSABLE [Suspect]
     Indication: TYPE 2 DIABETES MELLITUS
     Dosage: 5 UG, 2/D, SUBCUTANEOUS 10 UG, 2/D, 10 UG, 2/D 5 UG, 2/D,5 UG, 2/D 10 UG, 2/D
     Route: 058
     Dates: start: 20060401, end: 20060701
  3. EXENATIDE(EXENATIDE) PEN,DISPOSABLE [Suspect]
     Indication: TYPE 2 DIABETES MELLITUS
     Dosage: 5 UG, 2/D, SUBCUTANEOUS 10 UG, 2/D, 10 UG, 2/D 5 UG, 2/D,5 UG, 2/D 10 UG, 2/D
     Route: 058
     Dates: start: 20060424, end: 20060816
  4. EXENATIDE(EXENATIDE) PEN,DISPOSABLE [Suspect]
     Indication: TYPE 2 DIABETES MELLITUS
     Dosage: 5 UG, 2/D, SUBCUTANEOUS 10 UG, 2/D, 10 UG, 2/D 5 UG, 2/D,5 UG, 2/D 10 UG, 2/D
     Route: 058
     Dates: start: 20060501
  5. EXENATIDE(EXENATIDE) PEN,DISPOSABLE [Suspect]
     Indication: TYPE 2 DIABETES MELLITUS
     Dosage: 5 UG, 2/D, SUBCUTANEOUS 10 UG, 2/D, 10 UG, 2/D 5 UG, 2/D,5 UG, 2/D 10 UG, 2/D
     Route: 058
     Dates: start: 20060701
  6. EXENATIDE(EXENATIDE) PEN,DISPOSABLE [Suspect]
     Indication: TYPE 2 DIABETES MELLITUS
     Dosage: 5 UG, 2/D, SUBCUTANEOUS 10 UG, 2/D, 10 UG, 2/D 5 UG, 2/D,5 UG, 2/D 10 UG, 2/D
     Route: 058
     Dates: start: 20060817
  7. EXENATIDE [Concomitant]
  8. GLUCOVANCE [Concomitant]
  9. GLUCOPHAGE [Concomitant]
  10. EXENATIDE(EXENATIDE) PEN,DISPOSABLE [Suspect]
  11. EXENATIDE(EXENATIDE) PEN,DISPOSABLE [Suspect]
  12. EXENATIDE(EXENATIDE) PEN,DISPOSABLE [Suspect]

REACTIONS (13)
  - BLOOD CHOLESTEROL DECREASED [None]
  - BLOOD GLUCOSE DECREASED [None]
  - BLOOD GLUCOSE INCREASED [None]
  - BLOOD TRIGLYCERIDES DECREASED [None]
  - CONSTIPATION [None]
  - DECREASED APPETITE [None]
  - DYSPEPSIA [None]
  - FLATULENCE [None]
  - GASTROOESOPHAGEAL REFLUX DISEASE [None]
  - HUNGER [None]
  - TREATMENT NONCOMPLIANCE [None]
  - WEIGHT DECREASED [None]
  - WEIGHT INCREASED [None]
